FAERS Safety Report 10916470 (Version 1)
Quarter: 2015Q1

REPORT INFORMATION
  Report Type: Spontaneous
  Country: US (occurrence: None)
  Receive Date: 20150312
  Receipt Date: 20150312
  Transmission Date: 20150721
  Serious: No
  Sender: FDA-Public Use
  Company Number: None

PATIENT
  Age: 65 Year
  Sex: Female

DRUGS (1)
  1. STELARA [Suspect]
     Active Substance: USTEKINUMAB
     Dosage: 90MG Q12W SC?
     Route: 058
     Dates: start: 20140930

REACTIONS (1)
  - Visual impairment [None]

NARRATIVE: CASE EVENT DATE: 20141220
